FAERS Safety Report 5643152-8 (Version None)
Quarter: 2008Q1

REPORT INFORMATION
  Report Type: 
  Country: None (occurrence: None)
  Receive Date: 20080228
  Receipt Date: 20080227
  Transmission Date: 20080703
  Serious: Yes (Hospitalization)
  Sender: FDA-Public Use
  Company Number: SE-WYE-G01160508

PATIENT
  Sex: Male

DRUGS (3)
  1. TAZOCIN [Suspect]
  2. CEFUROXIME [Suspect]
  3. BENZYLPENICILLIN SODIUM [Suspect]
     Indication: PNEUMONIA

REACTIONS (1)
  - DIARRHOEA INFECTIOUS [None]
